FAERS Safety Report 6480229-1 (Version None)
Quarter: 2009Q4

REPORT INFORMATION
  Report Type: 
  Country: None (occurrence: None)
  Receive Date: 20091123
  Receipt Date: 20090806
  Transmission Date: 20100525
  Serious: No
  Sender: FDA-Public Use
  Company Number: 8050040

PATIENT
  Age: 28 Year
  Sex: Female
  Weight: 52.2 kg

DRUGS (2)
  1. CIMZIA [Suspect]
     Indication: CROHN'S DISEASE
     Dosage: 400 MG SC
     Route: 058
     Dates: start: 20090501
  2. AZATHIOPRINE [Concomitant]

REACTIONS (3)
  - DRY SKIN [None]
  - SENSITIVITY OF TEETH [None]
  - URINARY TRACT INFECTION [None]
